FAERS Safety Report 10204600 (Version 2)
Quarter: 2014Q3

REPORT INFORMATION
  Report Type: Spontaneous
  Country: US (occurrence: US)
  Receive Date: 20140529
  Receipt Date: 20140709
  Transmission Date: 20150326
  Serious: No
  Sender: FDA-Public Use
  Company Number: US-PFIZER INC-2014143173

PATIENT
  Age: 75 Year
  Sex: Female
  Weight: 89.2 kg

DRUGS (9)
  1. CENTRUM SILVER [Concomitant]
     Active Substance: VITAMINS
     Dosage: UNK
  2. TOPAMAX [Concomitant]
     Active Substance: TOPIRAMATE
     Indication: MIGRAINE
     Dosage: UNK, 1X/DAY (BEDTIME)
  3. SUTENT [Suspect]
     Active Substance: SUNITINIB MALATE
     Indication: METASTATIC RENAL CELL CARCINOMA
     Dosage: 50 MG DAILY, CYCLIC (4-WEEK ON, 2-WEEK OFF)
     Route: 048
     Dates: start: 2012, end: 20140510
  4. SUTENT [Suspect]
     Active Substance: SUNITINIB MALATE
     Dosage: 50 MG/M2 (2-WEEK ON, 1-WEEK OFF SCHEDULE)
  5. CALCIUM ACETATE. [Concomitant]
     Active Substance: CALCIUM ACETATE
     Dosage: 1 TABLET, 2 TIMES A DAY
  6. PLAVIX [Concomitant]
     Active Substance: CLOPIDOGREL BISULFATE
     Dosage: 75 MG, DAILY
  7. STOOL SOFTENER [Concomitant]
     Active Substance: DOCUSATE CALCIUM
     Dosage: UNK
  8. RENVELA [Concomitant]
     Active Substance: SEVELAMER CARBONATE
     Dosage: 2 DF, UNK
  9. LORATADINE. [Concomitant]
     Active Substance: LORATADINE
     Dosage: UNK, AS NEEDED

REACTIONS (10)
  - Mucosal inflammation [Unknown]
  - Dehydration [Unknown]
  - Vitamin D deficiency [Unknown]
  - Oral mucosal blistering [Unknown]
  - Blister [Unknown]
  - Diarrhoea [Unknown]
  - Drug intolerance [Unknown]
  - Weight decreased [Unknown]
  - Functional gastrointestinal disorder [Unknown]
  - Pancreatic disorder [Unknown]

NARRATIVE: CASE EVENT DATE: 2014
